FAERS Safety Report 13130520 (Version 4)
Quarter: 2017Q1

REPORT INFORMATION
  Report Type: Spontaneous
  Country: BR (occurrence: BR)
  Receive Date: 20170119
  Receipt Date: 20170303
  Transmission Date: 20170428
  Serious: Yes (Other)
  Sender: FDA-Public Use
  Company Number: BR-JNJFOC-20161207630

PATIENT
  Age: 31 Year
  Sex: Female

DRUGS (1)
  1. ORTHO EVRA [Suspect]
     Active Substance: ETHINYL ESTRADIOL\NORELGESTROMIN
     Indication: CONTRACEPTION
     Route: 062

REACTIONS (7)
  - Underdose [Unknown]
  - Product adhesion issue [Unknown]
  - Urinary tract infection [Unknown]
  - Abdominal pain [Unknown]
  - Amenorrhoea [Unknown]
  - Wrong technique in product usage process [Unknown]
  - Drug administered at inappropriate site [Unknown]

NARRATIVE: CASE EVENT DATE: 201611
